FAERS Safety Report 11785736 (Version 9)
Quarter: 2016Q3

REPORT INFORMATION
  Report Type: Spontaneous
  Country: US (occurrence: US)
  Receive Date: 20151130
  Receipt Date: 20160825
  Transmission Date: 20161109
  Serious: Yes (Hospitalization, Other)
  Sender: FDA-Public Use
  Company Number: US-PFIZER INC-2015394289

PATIENT
  Age: 61 Year
  Sex: Male
  Weight: 78.91 kg

DRUGS (21)
  1. LYRICA [Suspect]
     Active Substance: PREGABALIN
     Indication: PARAESTHESIA
     Dosage: 75 MG, 2X/DAY
     Route: 048
     Dates: start: 20151110
  2. DIAZEPAM. [Concomitant]
     Active Substance: DIAZEPAM
     Indication: HYPERTENSION
     Dosage: 10 MG, 4X/DAY AS NEEDED
     Route: 048
  3. CYCLOBENZAPRINE [Concomitant]
     Active Substance: CYCLOBENZAPRINE
     Indication: ARTHRITIS
     Dosage: 10 MG, 3X/DAY
     Route: 048
  4. ASPIRIN. [Concomitant]
     Active Substance: ASPIRIN
     Indication: CARDIAC DISORDER
     Dosage: 81 MG, 1X/DAY (IN THE MORNING)
     Route: 048
  5. PRAVASTATIN. [Concomitant]
     Active Substance: PRAVASTATIN
     Dosage: 20 MG, 1X/DAY
     Route: 048
  6. MINOCYCLINE [Concomitant]
     Active Substance: MINOCYCLINE\MINOCYCLINE HYDROCHLORIDE
     Indication: INFECTION
     Dosage: 100 MG, 2X/DAY
     Route: 048
  7. BENAZEPRIL HCL [Concomitant]
     Active Substance: BENAZEPRIL HYDROCHLORIDE
     Indication: BLOOD PRESSURE ABNORMAL
     Dosage: 40 MG, 1X/DAY
     Route: 048
  8. OMEGA XL [Concomitant]
     Active Substance: DIETARY SUPPLEMENT
     Indication: INFLAMMATION
     Dosage: 300 MG, 4X/DAY (300MG, UP TO 4 A DAY)
     Route: 048
     Dates: start: 201601
  9. CIPROFLOXACIN HCL [Concomitant]
     Active Substance: CIPROFLOXACIN HYDROCHLORIDE
     Dosage: 100 MG, 2X/DAY
     Route: 048
     Dates: start: 201508
  10. LYRICA [Suspect]
     Active Substance: PREGABALIN
     Indication: DIABETIC NEUROPATHY
     Dosage: 75 MG, 1X/DAY EVENING
     Route: 048
     Dates: start: 201401
  11. DIAZEPAM. [Concomitant]
     Active Substance: DIAZEPAM
     Indication: HYPERTENSION
  12. LYRICA [Suspect]
     Active Substance: PREGABALIN
     Dosage: 75 MG, UNK
  13. BENAZEPRIL [Concomitant]
     Active Substance: BENAZEPRIL HYDROCHLORIDE
     Indication: BLOOD PRESSURE ABNORMAL
     Dosage: 40 MG, 1X/DAY
     Route: 048
     Dates: start: 2006
  14. LYRICA [Suspect]
     Active Substance: PREGABALIN
     Indication: NEUROPATHY PERIPHERAL
     Dosage: 75 MG, 2X/DAY (MORNING + EVENING)
     Route: 048
     Dates: end: 201604
  15. TAMSULOSIN HCL [Concomitant]
     Active Substance: TAMSULOSIN
     Indication: URINARY TRACT INFECTION
     Dosage: 0.4 MG, 1X/DAY (IN THE MORNING)
     Route: 048
     Dates: start: 2015
  16. MINOCYCLINE [Concomitant]
     Active Substance: MINOCYCLINE\MINOCYCLINE HYDROCHLORIDE
     Indication: URINARY TRACT INFECTION
     Dosage: 100 MG, 1X/DAY
     Route: 048
  17. CIPROFLOXACIN HCL [Concomitant]
     Active Substance: CIPROFLOXACIN HYDROCHLORIDE
     Indication: INFECTION
     Dosage: 750 MG, 2X/DAY
  18. NAPROXEN SODIUM. [Concomitant]
     Active Substance: NAPROXEN SODIUM
     Indication: GASTRIC DISORDER
     Dosage: 220 MG, 2X/DAY (ONCE IN MORNING ONCE IN THE AFTERNOON)
     Route: 048
  19. NAPROXEN SODIUM. [Concomitant]
     Active Substance: NAPROXEN SODIUM
     Indication: ABDOMINAL DISCOMFORT
  20. DIAZEPAM. [Concomitant]
     Active Substance: DIAZEPAM
     Indication: INCREASED APPETITE
     Dosage: 10 MG, 3X/DAY
     Route: 048
  21. PROBIOTICS XL [Concomitant]
     Indication: ABDOMINAL DISCOMFORT
     Dosage: 1 DF, 2X/DAY (2 A DAY MORNING AND EVENING)
     Dates: start: 201601

REACTIONS (18)
  - Arthritis [Not Recovered/Not Resolved]
  - Post procedural infection [Unknown]
  - Dyspnoea exertional [Not Recovered/Not Resolved]
  - Withdrawal syndrome [Unknown]
  - Burning feet syndrome [Not Recovered/Not Resolved]
  - Limb discomfort [Not Recovered/Not Resolved]
  - Echocardiogram abnormal [Unknown]
  - Gait disturbance [Not Recovered/Not Resolved]
  - Neck injury [Not Recovered/Not Resolved]
  - Back disorder [Unknown]
  - Back disorder [Not Recovered/Not Resolved]
  - Peripheral swelling [Not Recovered/Not Resolved]
  - Pulse abnormal [Unknown]
  - Dyspnoea [Unknown]
  - Urinary tract infection [Unknown]
  - Palpitations [Unknown]
  - Weight increased [Recovering/Resolving]
  - Expired product administered [Unknown]

NARRATIVE: CASE EVENT DATE: 20140130
